FAERS Safety Report 12569181 (Version 7)
Quarter: 2019Q2

REPORT INFORMATION
  Report Type: Spontaneous
  Country: DE (occurrence: DE)
  Receive Date: 20160719
  Receipt Date: 20190603
  Transmission Date: 20190711
  Serious: Yes (Disabling, Other)
  Sender: FDA-Public Use
  Company Number: DE-SUN PHARMACEUTICAL INDUSTRIES LTD-2016RR-120356

PATIENT
  Age: 39 Year
  Sex: Male
  Weight: 61 kg

DRUGS (3)
  1. REVAXIS [Suspect]
     Active Substance: DIPHTHERIA AND TETANUS TOXOIDS AND POLIOVIRUS VACCINE ANTIGENS
     Indication: PROPHYLAXIS
     Dosage: UNK
     Route: 030
     Dates: start: 20160405
  2. LEVOFLOXACIN ARISTO [Suspect]
     Active Substance: LEVOFLOXACIN
     Indication: BACTERIAL PROSTATITIS
     Dosage: 500 MG, DAILY
     Route: 048
     Dates: start: 20160513, end: 20160514
  3. CIPRO [Suspect]
     Active Substance: CIPROFLOXACIN HYDROCHLORIDE
     Indication: BACTERIAL PROSTATITIS
     Dosage: 500 MG, BID
     Route: 048
     Dates: start: 20160513, end: 20160514

REACTIONS (39)
  - Paraesthesia [Unknown]
  - Vitreous floaters [Recovering/Resolving]
  - Tinnitus [Recovering/Resolving]
  - Tendon pain [Not Recovered/Not Resolved]
  - Tremor [Not Recovered/Not Resolved]
  - Tendonitis [Unknown]
  - Joint injury [Recovering/Resolving]
  - Tremor [Recovering/Resolving]
  - Myalgia [Not Recovered/Not Resolved]
  - Arrhythmia [Not Recovered/Not Resolved]
  - Asthenia [Not Recovered/Not Resolved]
  - Neuropathy peripheral [Unknown]
  - Arthralgia [Not Recovered/Not Resolved]
  - Asthenia [Unknown]
  - Muscular weakness [Not Recovered/Not Resolved]
  - Paraesthesia [Not Recovered/Not Resolved]
  - Pruritus [Not Recovered/Not Resolved]
  - Food intolerance [Not Recovered/Not Resolved]
  - Skin burning sensation [Recovering/Resolving]
  - Joint noise [Unknown]
  - Musculoskeletal stiffness [Unknown]
  - Tinnitus [Recovering/Resolving]
  - Feeling cold [Recovering/Resolving]
  - Vitreous floaters [Recovering/Resolving]
  - Myalgia [Recovering/Resolving]
  - Gait disturbance [Unknown]
  - Chills [Recovering/Resolving]
  - Myalgia [Unknown]
  - Skin burning sensation [Recovering/Resolving]
  - Gait inability [Not Recovered/Not Resolved]
  - Joint noise [Not Recovered/Not Resolved]
  - Musculoskeletal stiffness [Not Recovered/Not Resolved]
  - Arrhythmia [Unknown]
  - Muscular weakness [Unknown]
  - Panic attack [Recovering/Resolving]
  - Arthralgia [Not Recovered/Not Resolved]
  - Weight decreased [Unknown]
  - Dyspepsia [Unknown]
  - Food intolerance [Unknown]

NARRATIVE: CASE EVENT DATE: 20160513
